FAERS Safety Report 11864856 (Version 1)
Quarter: 2015Q4

REPORT INFORMATION
  Report Type: Spontaneous
  Country: US (occurrence: US)
  Receive Date: 20151223
  Receipt Date: 20151223
  Transmission Date: 20160305
  Serious: No
  Sender: FDA-Public Use
  Company Number: US-009507513-1512USA011343

PATIENT
  Sex: Male

DRUGS (2)
  1. COZAAR [Suspect]
     Active Substance: LOSARTAN POTASSIUM
     Dosage: UNK
     Route: 048
     Dates: start: 201511
  2. CARVEDILOL. [Concomitant]
     Active Substance: CARVEDILOL
     Dosage: UNK
     Dates: start: 201511

REACTIONS (2)
  - Adverse event [Unknown]
  - Hypotension [Unknown]

NARRATIVE: CASE EVENT DATE: 201511
